FAERS Safety Report 5311365-0 (Version None)
Quarter: 2007Q2

REPORT INFORMATION
  Report Type: 
  Country: None (occurrence: None)
  Receive Date: 20070430
  Receipt Date: 20070423
  Transmission Date: 20071010
  Serious: Yes (Other)
  Sender: FDA-Public Use
  Company Number: PHNR2007AU01024

PATIENT
  Age: 51 Year
  Sex: Female

DRUGS (6)
  1. TAXOL [Concomitant]
     Dosage: WEEKLY
  2. OXYCONTIN [Concomitant]
  3. OXYNORM [Concomitant]
  4. STEROIDS NOS [Concomitant]
     Dosage: IV AND ORAL
  5. ZOFRAN [Concomitant]
  6. ZOMETA [Suspect]
     Indication: BREAST CANCER
     Dosage: 4 MG, MONTHLY
     Dates: start: 20060101

REACTIONS (5)
  - GINGIVAL INFECTION [None]
  - GINGIVAL SWELLING [None]
  - OSTEONECROSIS [None]
  - PAIN IN JAW [None]
  - TOOTH EXTRACTION [None]
